FAERS Safety Report 8557886-9 (Version None)
Quarter: 2012Q3

REPORT INFORMATION
  Report Type: 
  Country: None (occurrence: None)
  Receive Date: 20120801
  Receipt Date: 20120709
  Transmission Date: 20120928
  Serious: Yes (Other)
  Sender: FDA-Public Use
  Company Number: JP-009507513-1208JPN000325

PATIENT

DRUGS (10)
  1. ALFAROL [Concomitant]
     Indication: HEPATITIS C
     Dosage: 1, THE DIVIDED DOSE FREQUENCY IS UNCERTAIN.
     Route: 048
     Dates: start: 20111206
  2. REBETOL [Suspect]
     Indication: HEPATITIS C
     Dosage: 200 MG IN THE MORNING AND 400 MG IN THE EVENING
     Route: 048
     Dates: start: 20100916, end: 20101224
  3. SINGULAIR TABLETS 10MG [Concomitant]
     Dosage: THE DIVIDED DOSE FREQUENCY IS UNCERTAIN.
     Route: 048
     Dates: start: 20101101, end: 20110425
  4. INTERFERON BETA NOS [Suspect]
     Indication: HEPATITIS C
     Route: 041
     Dates: start: 20100916, end: 20100921
  5. COPEGUS [Suspect]
     Indication: HEPATITIS C
     Dosage: 400 MG IN THE MORNING AND 200 MG IN THE EVENING
     Route: 048
     Dates: start: 20101227
  6. INTERFERON BETA NOS [Suspect]
     Route: 041
     Dates: start: 20101018, end: 20101224
  7. INTERFERON BETA NOS [Suspect]
     Route: 041
     Dates: start: 20100924, end: 20101016
  8. PEGASYS [Suspect]
     Indication: HEPATITIS C
     Dosage: 180 QW
     Route: 058
     Dates: start: 20101227
  9. ADVAIR DISKUS 100/50 [Concomitant]
     Indication: ASTHMA
     Route: 055
     Dates: start: 20101129, end: 20110130
  10. ONEALFA [Concomitant]
     Indication: HEPATITIS C
     Dosage: 0.5 THE DIVIDED DOSE FREQUENCY IS UNCERTAIN.
     Route: 048
     Dates: start: 20101227, end: 20111205

REACTIONS (8)
  - PYREXIA [None]
  - NEUTROPHIL COUNT DECREASED [None]
  - MALAISE [None]
  - DIARRHOEA [None]
  - WHITE BLOOD CELL COUNT DECREASED [None]
  - ALOPECIA [None]
  - PANCYTOPENIA [None]
  - HEADACHE [None]
